FAERS Safety Report 5381149-6 (Version None)
Quarter: 2007Q3

REPORT INFORMATION
  Report Type: 
  Country: None (occurrence: None)
  Receive Date: 20070706
  Receipt Date: 20070626
  Transmission Date: 20080115
  Serious: Yes (Other)
  Sender: FDA-Public Use
  Company Number: US-PFIZER INC-2007052091

PATIENT
  Age: 34 Year
  Sex: Male

DRUGS (1)
  1. METHYLPREDNISOLONE ACETATE [Suspect]
     Indication: MULTIPLE SCLEROSIS
     Dosage: DAILY DOSE:1GRAM
     Route: 042

REACTIONS (1)
  - HEPATIC NECROSIS [None]
